FAERS Safety Report 24556612 (Version 1)
Quarter: 2024Q4

REPORT INFORMATION
  Report Type: Spontaneous
  Country: US (occurrence: None)
  Receive Date: 20241027
  Receipt Date: 20241027
  Transmission Date: 20250114
  Serious: Yes (Disabling)
  Sender: Public
  Company Number: None

PATIENT
  Age: 57 Year
  Sex: Female
  Weight: 90 kg

DRUGS (21)
  1. PRIVIGEN [Suspect]
     Active Substance: HUMAN IMMUNOGLOBULIN G
     Indication: Immunodeficiency common variable
     Dosage: OTHER FREQUENCY : EVERY 4 WEEKS;?OTHER ROUTE : MEDIPORT IVIG;?
     Route: 050
     Dates: start: 20180701
  2. DEVICE [Concomitant]
     Active Substance: DEVICE
  3. CEFALY DUAL [Concomitant]
  4. OMEPRAZOLE [Concomitant]
     Active Substance: OMEPRAZOLE
  5. Wellbutrin XL [Concomitant]
  6. HYDROCHLOROTHIAZIDE [Concomitant]
     Active Substance: HYDROCHLOROTHIAZIDE
  7. METHOCARBAMOL [Concomitant]
     Active Substance: METHOCARBAMOL
  8. FENOFIBRATE [Concomitant]
     Active Substance: FENOFIBRATE
  9. Diazapam [Concomitant]
  10. NALTREXONE [Concomitant]
     Active Substance: NALTREXONE
  11. PRN: Epi [Concomitant]
  12. ALBUTEROL [Concomitant]
     Active Substance: ALBUTEROL
  13. ZOFRAN [Concomitant]
     Active Substance: ONDANSETRON HYDROCHLORIDE
  14. RinoCourt Aqua [Concomitant]
  15. Methylated Multi [Concomitant]
  16. Methylated B^s [Concomitant]
  17. Chelated Magnesium [Concomitant]
  18. POTASSIUM [Concomitant]
     Active Substance: POTASSIUM
  19. FISH OIL [Concomitant]
  20. VITAMIN C [Concomitant]
     Active Substance: ASCORBIC ACID
  21. PB8 probiotic [Concomitant]

REACTIONS (20)
  - Weight increased [None]
  - Abdominal distension [None]
  - Fatigue [None]
  - Urine output decreased [None]
  - Flank pain [None]
  - Gait inability [None]
  - Nausea [None]
  - Urine abnormality [None]
  - Urine abnormality [None]
  - Dysuria [None]
  - Bladder pain [None]
  - Headache [None]
  - Decreased appetite [None]
  - Fluid intake reduced [None]
  - Basophil count increased [None]
  - Eosinophil count increased [None]
  - Renal disorder [None]
  - Rash [None]
  - Pain [None]
  - Dehydration [None]

NARRATIVE: CASE EVENT DATE: 20241018
